FAERS Safety Report 8470542 (Version 2)
Quarter: 2020Q3

REPORT INFORMATION
  Report Type: Spontaneous
  Country: GB (occurrence: GB)
  Receive Date: 20120321
  Receipt Date: 20120720
  Transmission Date: 20201105
  Serious: Yes (Hospitalization)
  Sender: FDA-Public Use
  Company Number: GB-ROCHE-1048799

PATIENT
  Age: 78 Year
  Sex: Female

DRUGS (1)
  1. IBANDRONIC ACID. [Suspect]
     Active Substance: IBANDRONIC ACID
     Indication: OSTEOPOROSIS
     Route: 042
     Dates: end: 201202

REACTIONS (2)
  - Joint swelling [Recovering/Resolving]
  - Atrial fibrillation [Recovered/Resolved with Sequelae]
